FAERS Safety Report 25962213 (Version 2)
Quarter: 2025Q4

REPORT INFORMATION
  Report Type: Spontaneous
  Country: US (occurrence: US)
  Receive Date: 20251027
  Receipt Date: 20251110
  Transmission Date: 20260118
  Serious: No
  Sender: ALEXION PHARMACEUTICALS
  Company Number: US-AstraZeneca-CH-00975963AP

PATIENT
  Sex: Male

DRUGS (1)
  1. AIRSUPRA [Suspect]
     Active Substance: ALBUTEROL SULFATE\BUDESONIDE
     Dosage: 90 MICROGRAM

REACTIONS (6)
  - Device malfunction [Unknown]
  - Device failure [Unknown]
  - Product dose omission issue [Unknown]
  - Off label use [Unknown]
  - Product lot number issue [Unknown]
  - Device information output issue [Unknown]
